FAERS Safety Report 16531628 (Version 4)
Quarter: 2019Q4

REPORT INFORMATION
  Report Type: Spontaneous
  Country: JP (occurrence: JP)
  Receive Date: 20190705
  Receipt Date: 20191206
  Transmission Date: 20200122
  Serious: Yes (Other)
  Sender: FDA-Public Use
  Company Number: JP-ASTRAZENECA-2019SE95179

PATIENT
  Age: 29712 Day
  Sex: Male

DRUGS (4)
  1. CODEINE PHOSPHATE HYDRATE [Suspect]
     Active Substance: CODEINE PHOSPHATE
     Indication: COUGH
     Dosage: 10.0MG UNKNOWN
     Route: 048
     Dates: start: 20190531, end: 201906
  2. CODEINE PHOSPHATE HYDRATE [Suspect]
     Active Substance: CODEINE PHOSPHATE
     Indication: COUGH
     Dosage: 20.0MG UNKNOWN
     Route: 048
  3. NEXIUM [Suspect]
     Active Substance: ESOMEPRAZOLE MAGNESIUM
     Indication: GASTROOESOPHAGEAL REFLUX DISEASE
     Route: 048
     Dates: start: 20190606
  4. DOMPERIDONE [Concomitant]
     Active Substance: DOMPERIDONE
     Indication: INTERSTITIAL LUNG DISEASE
     Dosage: 10.0MG AS REQUIRED
     Route: 048
     Dates: start: 20190606

REACTIONS (2)
  - Product dose omission [Unknown]
  - Interstitial lung disease [Not Recovered/Not Resolved]

NARRATIVE: CASE EVENT DATE: 20190608
